FAERS Safety Report 7390532-9 (Version None)
Quarter: 2011Q2

REPORT INFORMATION
  Report Type: 
  Country: None (occurrence: None)
  Receive Date: 20110403
  Receipt Date: 20110321
  Transmission Date: 20111010
  Serious: Yes (Hospitalization)
  Sender: FDA-Public Use
  Company Number: AU-ELI_LILLY_AND_COMPANY-AU201103007777

PATIENT
  Sex: Male

DRUGS (15)
  1. GEMCITABINE HYDROCHLORIDE [Suspect]
     Indication: PANCREATIC CARCINOMA
     Dosage: 2000 MG, UNK
     Dates: start: 20110210
  2. SILYBUM MARIANUM [Concomitant]
     Indication: PROPHYLAXIS
     Dosage: UNK
     Dates: start: 20110101
  3. METOCLOPRAMIDE [Concomitant]
     Indication: NAUSEA
     Dosage: UNK
     Dates: start: 20110210
  4. IBUPROFEN [Concomitant]
     Indication: MUSCULOSKELETAL PAIN
     Dosage: UNK
     Dates: start: 20110101
  5. NUROFEN [Concomitant]
     Indication: MUSCULOSKELETAL PAIN
     Dosage: UNK
     Dates: start: 20101001
  6. OXYCONTIN [Concomitant]
     Indication: MUSCULOSKELETAL PAIN
     Dosage: UNK
     Dates: start: 20110101
  7. PREGABALIN [Concomitant]
     Indication: MUSCULOSKELETAL PAIN
     Dosage: UNK
     Dates: start: 20110208
  8. OXYNORM [Concomitant]
     Indication: MUSCULOSKELETAL PAIN
     Dosage: UNK
     Dates: start: 20110101
  9. ACTILAX                            /00841201/ [Concomitant]
     Indication: COLITIS ULCERATIVE
     Dosage: UNK
     Dates: start: 20110131
  10. AMOXICILLIN + CLAVULANATE POTASSIUM [Concomitant]
     Indication: CELLULITIS
     Dosage: UNK
     Route: 048
     Dates: start: 20110223, end: 20110301
  11. PENTASA [Concomitant]
     Indication: COLITIS ULCERATIVE
     Dosage: UNK
     Dates: start: 20080101
  12. MINERAL TAB [Concomitant]
     Indication: PROPHYLAXIS
     Dosage: UNK
     Dates: start: 20110101
  13. MESALAMINE [Concomitant]
     Indication: COLITIS ULCERATIVE
     Dosage: UNK
     Dates: start: 20101201
  14. PANTOPRAZOLE [Concomitant]
     Indication: GASTROOESOPHAGEAL REFLUX DISEASE
     Dosage: UNK
     Dates: start: 20080101
  15. PARACETAMOL [Concomitant]
     Indication: MUSCULOSKELETAL PAIN
     Dosage: UNK
     Dates: start: 20110201

REACTIONS (1)
  - GASTROENTERITIS CLOSTRIDIAL [None]
